FAERS Safety Report 13655535 (Version 3)
Quarter: 2017Q3

REPORT INFORMATION
  Report Type: Spontaneous
  Country: JP (occurrence: JP)
  Receive Date: 20170615
  Receipt Date: 20170804
  Transmission Date: 20171127
  Serious: Yes (Hospitalization, Congenital Anomaly, Other)
  Sender: FDA-Public Use
  Company Number: JP-GLAXOSMITHKLINE-JP2017JPN089966

PATIENT
  Age: 0 Day
  Sex: Female
  Weight: 2.46 kg

DRUGS (3)
  1. EPIVIR [Suspect]
     Active Substance: LAMIVUDINE
     Dosage: 300 MG, QD
     Route: 064
     Dates: start: 20131025
  2. RETROVIR [Suspect]
     Active Substance: ZIDOVUDINE
     Dosage: 200 MG, BID
     Route: 064
     Dates: start: 20131025
  3. VIRAMUNE [Concomitant]
     Active Substance: NEVIRAPINE
     Dosage: 200 MG, BID
     Dates: start: 20120916

REACTIONS (1)
  - Anal atresia [Recovering/Resolving]

NARRATIVE: CASE EVENT DATE: 20170529
